FAERS Safety Report 21073482 (Version 2)
Quarter: 2023Q1

REPORT INFORMATION
  Report Type: Spontaneous
  Country: BR (occurrence: BR)
  Receive Date: 20220713
  Receipt Date: 20230113
  Transmission Date: 20230418
  Serious: Yes (Death, Life-Threatening, Hospitalization, Other)
  Sender: FDA-Public Use
  Company Number: BR-STRIDES ARCOLAB LIMITED-2022SP008624

PATIENT
  Age: 52 Year
  Sex: Male

DRUGS (4)
  1. TACROLIMUS [Suspect]
     Active Substance: TACROLIMUS
     Indication: Liver transplant
     Dosage: UNK
     Route: 065
  2. MYCOPHENOLATE MOFETIL [Suspect]
     Active Substance: MYCOPHENOLATE MOFETIL
     Indication: Liver transplant
     Dosage: UNK
     Route: 065
  3. PREDNISOLONE [Suspect]
     Active Substance: PREDNISOLONE
     Indication: Liver transplant
     Dosage: UNK
     Route: 048
  4. HYDROCORTISONE [Suspect]
     Active Substance: HYDROCORTISONE
     Indication: Liver transplant
     Dosage: UNK
     Route: 065

REACTIONS (8)
  - Shock [Fatal]
  - Hepatic failure [Fatal]
  - Renal failure [Fatal]
  - Metastases to meninges [Fatal]
  - Haemophagocytic lymphohistiocytosis [Not Recovered/Not Resolved]
  - Leukopenia [Not Recovered/Not Resolved]
  - Pyelonephritis acute [Unknown]
  - Tuberculosis [Not Recovered/Not Resolved]
